FAERS Safety Report 21765006 (Version 1)
Quarter: 2022Q4

REPORT INFORMATION
  Report Type: Spontaneous
  Country: SI (occurrence: SI)
  Receive Date: 20221222
  Receipt Date: 20221222
  Transmission Date: 20230113
  Serious: Yes (Other)
  Sender: FDA-Public Use
  Company Number: SI-002147023-NVSC2022SI292361

PATIENT
  Age: 41 Year
  Sex: Female

DRUGS (2)
  1. KISQALI [Suspect]
     Active Substance: RIBOCICLIB
     Indication: Product used for unknown indication
     Dosage: 600 MG (3 WEEKS ON, 1 WEEK OFF)
     Route: 065
     Dates: start: 202107, end: 202206
  2. FULVESTRANT [Suspect]
     Active Substance: FULVESTRANT
     Indication: Product used for unknown indication
     Dosage: 500 MG
     Route: 065
     Dates: start: 202107, end: 202206

REACTIONS (7)
  - Neutropenia [Unknown]
  - Electrocardiogram QT prolonged [Unknown]
  - Carbohydrate antigen 15-3 increased [Unknown]
  - Chest pain [Unknown]
  - Bone lesion [Unknown]
  - Hepatic lesion [Unknown]
  - Fatigue [Unknown]

NARRATIVE: CASE EVENT DATE: 20210801
